FAERS Safety Report 8537161-9 (Version None)
Quarter: 2012Q3

REPORT INFORMATION
  Report Type: 
  Country: None (occurrence: None)
  Receive Date: 20120725
  Receipt Date: 20120718
  Transmission Date: 20120928
  Serious: Yes (Hospitalization)
  Sender: FDA-Public Use
  Company Number: FR-BRISTOL-MYERS SQUIBB COMPANY-16301517

PATIENT
  Age: 38 Year
  Sex: Male

DRUGS (8)
  1. OXAZEPAM [Concomitant]
     Dates: start: 20101001
  2. IMOVANE [Concomitant]
     Indication: INSOMNIA
     Dates: start: 20091106
  3. CYMBALTA [Concomitant]
  4. TERCIAN [Concomitant]
     Dates: start: 20001001
  5. ABILIFY [Suspect]
     Indication: BIPOLAR DISORDER
     Dosage: DOSE INCREASD ON MAR2010
     Route: 048
     Dates: start: 20091106, end: 20110401
  6. ZYPREXA [Concomitant]
     Indication: BIPOLAR DISORDER
     Dates: start: 20001001, end: 20091106
  7. NOCTRAN [Concomitant]
     Indication: INSOMNIA
     Dates: start: 20001001, end: 20091001
  8. MIRTAZAPINE [Suspect]
     Indication: DEPRESSION
     Dates: start: 20091106

REACTIONS (1)
  - PATHOLOGICAL GAMBLING [None]
